FAERS Safety Report 13230031 (Version 1)
Quarter: 2017Q1

REPORT INFORMATION
  Report Type: Spontaneous
  Country: US (occurrence: US)
  Receive Date: 20170213
  Receipt Date: 20170213
  Transmission Date: 20170428
  Serious: Yes (Other)
  Sender: FDA-Public Use
  Company Number: None

PATIENT
  Age: 86 Year
  Sex: Female
  Weight: 66 kg

DRUGS (2)
  1. FUROSEMIDE. [Concomitant]
     Active Substance: FUROSEMIDE
  2. AMIODARONE [Suspect]
     Active Substance: AMIODARONE
     Indication: ATRIAL FIBRILLATION
     Dosage: ?          OTHER FREQUENCY:MG/MIN;?
     Route: 041

REACTIONS (11)
  - Dizziness [None]
  - Back pain [None]
  - Blood pressure increased [None]
  - Oxygen saturation decreased [None]
  - Loss of consciousness [None]
  - Hyperhidrosis [None]
  - Depressed level of consciousness [None]
  - Heart rate increased [None]
  - Dyspnoea [None]
  - Infusion related reaction [None]
  - Atrial fibrillation [None]

NARRATIVE: CASE EVENT DATE: 20170212
